FAERS Safety Report 6306595-5 (Version None)
Quarter: 2009Q3

REPORT INFORMATION
  Report Type: 
  Country: None (occurrence: None)
  Receive Date: 20090812
  Receipt Date: 20090810
  Transmission Date: 20100115
  Serious: Yes (Other)
  Sender: FDA-Public Use
  Company Number: A0801204A

PATIENT
  Sex: Male

DRUGS (3)
  1. VALTREX [Suspect]
     Dosage: 1G THREE TIMES PER DAY
     Route: 065
     Dates: start: 20090101, end: 20090801
  2. METFORMIN [Concomitant]
     Route: 065
     Dates: end: 20090801
  3. GLYBURIDE [Concomitant]
     Route: 065
     Dates: end: 20090801

REACTIONS (2)
  - ABDOMINAL PAIN [None]
  - RENAL FAILURE ACUTE [None]
